FAERS Safety Report 6142919-X (Version None)
Quarter: 2009Q2

REPORT INFORMATION
  Report Type: 
  Country: None (occurrence: None)
  Receive Date: 20090403
  Receipt Date: 20090327
  Transmission Date: 20091009
  Serious: Yes (Other)
  Sender: FDA-Public Use
  Company Number: GB-TEVA-189544ISR

PATIENT
  Age: 31 Year
  Sex: Female

DRUGS (4)
  1. AMITRIPTYLINE HCL [Suspect]
     Indication: ANXIETY
     Route: 048
     Dates: start: 20080917
  2. AMITRIPTYLINE HCL [Suspect]
     Indication: DEPRESSION
  3. ESCITALOPRAM [Suspect]
     Indication: ANXIETY
     Dates: start: 20040928, end: 20080905
  4. ESCITALOPRAM [Suspect]
     Indication: DEPRESSION

REACTIONS (3)
  - CONGENITAL BLADDER ANOMALY [None]
  - PULMONARY MALFORMATION [None]
  - STILLBIRTH [None]
